FAERS Safety Report 22692213 (Version 3)
Quarter: 2024Q1

REPORT INFORMATION
  Report Type: Spontaneous
  Country: US (occurrence: US)
  Receive Date: 20230711
  Receipt Date: 20240311
  Transmission Date: 20240410
  Serious: No
  Sender: FDA-Public Use
  Company Number: US-PFIZER INC-202300243507

PATIENT
  Age: 77 Year
  Sex: Female

DRUGS (1)
  1. IBRANCE [Suspect]
     Active Substance: PALBOCICLIB
     Dosage: 1 CAPSULE/125 MG ONCE A DAY FOR 21 DAYS ON, THEN 7 DAYS OFF EVERY 28 DAYS
     Route: 048
     Dates: start: 20230606

REACTIONS (1)
  - White blood cell count decreased [Not Recovered/Not Resolved]
